FAERS Safety Report 19132841 (Version 2)
Quarter: 2021Q2

REPORT INFORMATION
  Report Type: Report from Study
  Country: CO (occurrence: CO)
  Receive Date: 20210414
  Receipt Date: 20210422
  Transmission Date: 20210717
  Serious: Yes (Death, Hospitalization)
  Sender: FDA-Public Use
  Company Number: NVSC2021CO083691

PATIENT
  Sex: Female

DRUGS (1)
  1. TASIGNA [Suspect]
     Active Substance: NILOTINIB
     Indication: CHRONIC MYELOID LEUKAEMIA
     Dosage: 400 MG, Q12H
     Route: 048
     Dates: end: 20210330

REACTIONS (5)
  - Malignant neoplasm progression [Fatal]
  - Pulmonary oedema [Unknown]
  - Product dose omission issue [Unknown]
  - Chronic myeloid leukaemia [Fatal]
  - Dyspnoea [Unknown]
